FAERS Safety Report 9031870 (Version 4)
Quarter: 2013Q3

REPORT INFORMATION
  Report Type: Spontaneous
  Country: US (occurrence: US)
  Receive Date: 20130124
  Receipt Date: 20130909
  Transmission Date: 20140515
  Serious: Yes (Hospitalization, Other)
  Sender: FDA-Public Use
  Company Number: US-009507513-1111USA02484

PATIENT
  Sex: Male
  Weight: 78.5 kg

DRUGS (8)
  1. FOSAMAX [Suspect]
     Indication: OSTEOPOROSIS
     Dosage: 70 MG, QW
     Route: 048
     Dates: start: 1995
  2. THERAPY UNSPECIFIED [Concomitant]
     Indication: HYPERTENSION
  3. THERAPY UNSPECIFIED [Concomitant]
     Indication: BLOOD CHOLESTEROL INCREASED
  4. MK-9278 [Concomitant]
  5. CALCIUM (UNSPECIFIED) [Concomitant]
  6. THERAPY UNSPECIFIED [Concomitant]
     Indication: RHEUMATOID ARTHRITIS
  7. THERAPY UNSPECIFIED [Concomitant]
     Indication: DIABETES MELLITUS
  8. ALENDRONATE SODIUM [Suspect]
     Indication: OSTEOPOROSIS
     Dosage: 70 MG, QW
     Route: 048
     Dates: start: 20130416

REACTIONS (31)
  - Open reduction of fracture [Unknown]
  - Acetabulum fracture [Unknown]
  - Convulsion [Unknown]
  - Femur fracture [Unknown]
  - Tibia fracture [Unknown]
  - Spinal fusion surgery [Unknown]
  - Transfusion [Unknown]
  - Osteonecrosis of jaw [Unknown]
  - Jaw fracture [Unknown]
  - Fall [Unknown]
  - Osteopenia [Unknown]
  - Scoliosis [Unknown]
  - Intervertebral disc degeneration [Unknown]
  - Intervertebral disc space narrowing [Unknown]
  - Aortic arteriosclerosis [Unknown]
  - Osteoarthritis [Unknown]
  - Tuberculosis [Unknown]
  - Depression [Unknown]
  - Neuropathy peripheral [Unknown]
  - Pubis fracture [Unknown]
  - Bone deformity [Unknown]
  - Bone deformity [Unknown]
  - Loose body in joint [Unknown]
  - Haemorrhage [Unknown]
  - Fall [Unknown]
  - Foot fracture [Unknown]
  - Rib fracture [Unknown]
  - Fibula fracture [Unknown]
  - Diarrhoea [Unknown]
  - Vomiting [Unknown]
  - Nausea [Unknown]
